FAERS Safety Report 7763336 (Version 2)
Quarter: 2013Q2

REPORT INFORMATION
  Report Type: Report from Study
  Country: CL (occurrence: CL)
  Receive Date: 20110118
  Receipt Date: 20130514
  Transmission Date: 20140414
  Serious: Yes (Death, Life-Threatening, Other)
  Sender: FDA-Public Use
  Company Number: CL-SANOFI-AVENTIS-2011SA002480

PATIENT
  Age: 79 Year
  Sex: Male
  Weight: 68 kg

DRUGS (36)
  1. HEPARIN SODIUM [Suspect]
     Indication: ACUTE CORONARY SYNDROME
     Route: 042
     Dates: start: 20110103, end: 20110105
  2. ASPIRINA [Suspect]
     Indication: ACUTE CORONARY SYNDROME
     Route: 048
  3. ASPIRINA [Suspect]
     Indication: ACUTE CORONARY SYNDROME
     Route: 048
     Dates: start: 20110103, end: 20110103
  4. ASPIRINA [Suspect]
     Indication: ACUTE CORONARY SYNDROME
     Route: 048
     Dates: start: 20110104, end: 20110104
  5. PLAVIX [Suspect]
     Indication: ACUTE CORONARY SYNDROME
     Route: 048
     Dates: start: 20110103, end: 20110103
  6. CLEXANE [Concomitant]
     Route: 058
     Dates: start: 20110105, end: 20110105
  7. HEPARINE [Concomitant]
     Route: 040
     Dates: start: 20110105, end: 20110105
  8. HEPARINE [Concomitant]
     Route: 042
     Dates: start: 20110105, end: 20110105
  9. GLYCERYL TRINITRATE [Concomitant]
     Dates: start: 20110103, end: 20110106
  10. ATORVASTATIN [Concomitant]
     Dates: start: 20110103, end: 20110105
  11. FAMOTIDINE [Concomitant]
     Dates: start: 20110104, end: 20110105
  12. NITRODERM [Concomitant]
     Dates: start: 20110105, end: 20110106
  13. LORAZEPAM [Concomitant]
     Dates: start: 20110105, end: 20110105
  14. LORAZEPAM [Concomitant]
     Dates: start: 20110106, end: 20110106
  15. ATROPINE [Concomitant]
     Dates: start: 20110106, end: 20110106
  16. MORPHINE [Concomitant]
     Dates: start: 20110106, end: 20110106
  17. ELZOGRAM [Concomitant]
     Dates: start: 20110106, end: 20110106
  18. TRANEXAMIC ACID [Concomitant]
     Dates: start: 20110106, end: 20110106
  19. FENTANYL [Concomitant]
     Dates: start: 20110106, end: 20110106
  20. FENTANYL [Concomitant]
     Dates: start: 20110107, end: 20110107
  21. NORCURON [Concomitant]
     Dates: start: 20110106, end: 20110106
  22. NEOSTIGMINE [Concomitant]
     Dates: start: 20110106, end: 20110106
  23. PHENYLEPHRINE [Concomitant]
     Dates: start: 20110106, end: 20110106
  24. PRECEDEX [Concomitant]
     Dates: start: 20110106
  25. PROPOFOL [Concomitant]
     Dates: start: 20110106, end: 20110110
  26. PROTAMINE [Concomitant]
     Dates: start: 20110106, end: 20110106
  27. CALCIUM GLUCONATE [Concomitant]
     Dates: start: 20110106, end: 20110106
  28. CALCIUM GLUCONATE [Concomitant]
     Dates: start: 20110107, end: 20110107
  29. MIDAZOLAM [Concomitant]
     Dates: start: 20110106, end: 20110106
  30. LIDOCAINE [Concomitant]
     Dates: start: 20110106, end: 20110106
  31. FUROSEMIDE [Concomitant]
     Dates: start: 20110107, end: 20110107
  32. FUROSEMIDE [Concomitant]
     Dates: start: 20110106, end: 20110106
  33. SUCRALFATE [Concomitant]
     Dates: start: 20110107, end: 20110110
  34. ANTIBIOTICS [Concomitant]
     Dates: start: 20110107, end: 20110107
  35. INSULIN [Concomitant]
     Dates: start: 20110107, end: 20110109
  36. SODIUM BICARBONATE [Concomitant]
     Dates: start: 20110106, end: 20110106

REACTIONS (3)
  - Multi-organ failure [Fatal]
  - Post procedural haemorrhage [Recovered/Resolved]
  - Renal failure acute [Not Recovered/Not Resolved]
